FAERS Safety Report 8688336 (Version 2)
Quarter: 2013Q4

REPORT INFORMATION
  Report Type: Spontaneous
  Country: US (occurrence: US)
  Receive Date: 20120727
  Receipt Date: 20131031
  Transmission Date: 20140711
  Serious: No
  Sender: FDA-Public Use
  Company Number: US-009507513-2012SP016062

PATIENT
  Age: 26 Year
  Sex: Female
  Weight: 141.98 kg

DRUGS (3)
  1. CLARITIN [Suspect]
     Indication: SEASONAL ALLERGY
     Dosage: 10 MG, QD
     Route: 048
     Dates: start: 20120225, end: 20120228
  2. CLARITIN [Suspect]
     Indication: MEDICAL OBSERVATION
  3. PREVACID [Concomitant]
     Indication: GASTROOESOPHAGEAL REFLUX DISEASE
     Dosage: UNK UNK, UNKNOWN

REACTIONS (3)
  - Dyspnoea [Recovered/Resolved]
  - Nonspecific reaction [Recovered/Resolved]
  - Drug ineffective [Unknown]
